FAERS Safety Report 18098212 (Version 1)
Quarter: 2020Q3

REPORT INFORMATION
  Report Type: Report from Study
  Country: US (occurrence: US)
  Receive Date: 20200731
  Receipt Date: 20200731
  Transmission Date: 20201103
  Serious: Yes (Hospitalization, Other)
  Sender: FDA-Public Use
  Company Number: US-MYLANLABS-2020M1067647

PATIENT
  Age: 4 Year
  Sex: Female
  Weight: 25.8 kg

DRUGS (8)
  1. PREDNISONE. [Suspect]
     Active Substance: PREDNISONE
     Indication: ACUTE LYMPHOCYTIC LEUKAEMIA
     Dosage: 17.5 MLIGRAM, BID (MC3D1?5,29?33)
     Route: 048
     Dates: start: 20200519
  2. METHOTREXATE. [Suspect]
     Active Substance: METHOTREXATE
     Indication: ACUTE LYMPHOCYTIC LEUKAEMIA
     Dosage: 12 MILLIGRAM (MCD31)
     Route: 037
     Dates: start: 20200519
  3. RUXOLITINIB [Suspect]
     Active Substance: RUXOLITINIB
     Indication: ACUTE LYMPHOCYTIC LEUKAEMIA
     Dosage: 40 MILLIGRAM, BID (CONSOLIDATION IM1, DI PT 1, DI PT 2, MC1)
     Route: 048
     Dates: start: 20190304, end: 20200210
  4. RUXOLITINIB [Suspect]
     Active Substance: RUXOLITINIB
     Dosage: 45 MILLIGRAM, BID (MC3D1?14.29?43)
     Route: 048
     Dates: start: 20191008
  5. METHOTREXATE. [Suspect]
     Active Substance: METHOTREXATE
     Indication: ACUTE LYMPHOCYTIC LEUKAEMIA
     Dosage: 17.5 MILLIGRAM (MC3D8,15,22,29,36,43)
     Route: 048
     Dates: start: 20200526, end: 20200707
  6. ZYLOPRIM [Suspect]
     Active Substance: ALLOPURINOL
     Indication: TRANSAMINASES INCREASED
     Dosage: 100 MILLIGRAM, QD
     Dates: start: 20200617
  7. VINCRISTINE [Suspect]
     Active Substance: VINCRISTINE
     Indication: ACUTE LYMPHOCYTIC LEUKAEMIA
     Dosage: 1.35 MILLIGRAM (MC3D1,29)
     Route: 042
     Dates: start: 20200519
  8. MERCAPTOPURINE. [Suspect]
     Active Substance: MERCAPTOPURINE
     Indication: ACUTE LYMPHOCYTIC LEUKAEMIA
     Dosage: 50 MILLIGRAM (MC3D1?48)
     Route: 048
     Dates: start: 20200519, end: 20200706

REACTIONS (4)
  - Anaemia [Not Recovered/Not Resolved]
  - Febrile neutropenia [Not Recovered/Not Resolved]
  - White blood cell count decreased [Not Recovered/Not Resolved]
  - Platelet count decreased [Not Recovered/Not Resolved]

NARRATIVE: CASE EVENT DATE: 20200706
